FAERS Safety Report 12167249 (Version 1)
Quarter: 2016Q1

REPORT INFORMATION
  Report Type: Spontaneous
  Country: US (occurrence: US)
  Receive Date: 20160310
  Receipt Date: 20160310
  Transmission Date: 20160526
  Serious: Yes (Death, Hospitalization)
  Sender: FDA-Public Use
  Company Number: US-DRREDDYS-USA/USA/16/0077739

PATIENT

DRUGS (2)
  1. GEMCITABINE [Suspect]
     Active Substance: GEMCITABINE\GEMCITABINE HYDROCHLORIDE
     Indication: HODGKIN^S DISEASE
     Dosage: RECEIVED GEM DOSED AT 1000 MG/M2 ON DAY 1 OF EACH CYCLE FOR UP TO 6 CYCLES
     Route: 065
  2. BENDAMUSTINE [Suspect]
     Active Substance: BENDAMUSTINE
     Indication: HODGKIN^S DISEASE
     Dosage: 60MG/M2 TO 120 MG/M2 ON DAYS 1 AND 2 OF EACH CYCLE FOR UP TO 6 CYCLES
     Route: 065

REACTIONS (2)
  - Respiratory failure [Fatal]
  - Infection [Unknown]
